FAERS Safety Report 5524152-5 (Version None)
Quarter: 2007Q4

REPORT INFORMATION
  Report Type: 
  Country: None (occurrence: None)
  Receive Date: 20071121
  Receipt Date: 20071109
  Transmission Date: 20080405
  Serious: Yes (Other)
  Sender: FDA-Public Use
  Company Number: US-PFIZER INC-2007095447

PATIENT
  Sex: Female
  Weight: 70.3 kg

DRUGS (2)
  1. RELPAX [Suspect]
     Indication: MIGRAINE
  2. PRENATAL VITAMINS [Concomitant]

REACTIONS (2)
  - ABORTION SPONTANEOUS [None]
  - VAGINAL DISCHARGE [None]
